FAERS Safety Report 14491131 (Version 1)
Quarter: 2018Q1

REPORT INFORMATION
  Report Type: Spontaneous
  Country: CN (occurrence: CN)
  Receive Date: 20180206
  Receipt Date: 20180206
  Transmission Date: 20180509
  Serious: Yes (Other)
  Sender: FDA-Public Use
  Company Number: CN-TELIGENT, INC-IGIL20180059

PATIENT
  Age: 55 Year
  Sex: Male
  Weight: 70 kg

DRUGS (3)
  1. SODIUM VALPROAT [Concomitant]
     Active Substance: VALPROATE SODIUM
     Indication: PROPHYLAXIS
     Dosage: 0.4 G
     Dates: start: 20171109
  2. CEFTAZIDIME. [Suspect]
     Active Substance: CEFTAZIDIME
     Indication: PNEUMONITIS
     Dosage: 2 G
     Route: 041
     Dates: start: 20171106, end: 20171111
  3. PIPERACILLIN SODIUM PLUS TAZOBACTAM SODIUM [Suspect]
     Active Substance: PIPERACILLIN SODIUM\TAZOBACTAM SODIUM
     Indication: PNEUMONITIS
     Dosage: 3.375 G
     Route: 041
     Dates: start: 20171111, end: 20171120

REACTIONS (4)
  - Drug hypersensitivity [Unknown]
  - Drug ineffective [Unknown]
  - Skin wound [Recovered/Resolved]
  - Blister [Recovered/Resolved]

NARRATIVE: CASE EVENT DATE: 201711
